FAERS Safety Report 10584194 (Version 6)
Quarter: 2015Q3

REPORT INFORMATION
  Report Type: Spontaneous
  Country: US (occurrence: US)
  Receive Date: 20141114
  Receipt Date: 20150706
  Transmission Date: 20151125
  Serious: Yes (Hospitalization, Other)
  Sender: FDA-Public Use
  Company Number: US-PFIZER INC-2014311111

PATIENT
  Age: 79 Year
  Sex: Female
  Weight: 67 kg

DRUGS (23)
  1. PRILOSEC [Concomitant]
     Active Substance: OMEPRAZOLE MAGNESIUM
     Dosage: TAKE 20 MG BY MOUTH, EVERY MORNING (BEFORE BREAKFAST)
     Route: 048
  2. APRESOLINE HYDROCHLORIDE [Concomitant]
     Active Substance: HYDRALAZINE HYDROCHLORIDE
     Dosage: 100 MG, 3X/DAY
     Route: 048
  3. LOPRESSOR [Concomitant]
     Active Substance: METOPROLOL TARTRATE
     Dosage: 25 MG TABLET; TAKE 1 TABLET BY MOUTH, TWICE DAILY
     Route: 048
  4. SYNTHROID [Concomitant]
     Active Substance: LEVOTHYROXINE SODIUM
     Dosage: 100 ?G, DAILY
     Route: 048
  5. CARTIA XT [Concomitant]
     Active Substance: DILTIAZEM HYDROCHLORIDE
     Dosage: 240 MG, DAILY
     Route: 048
  6. VENTAVIS [Suspect]
     Active Substance: ILOPROST
     Indication: PULMONARY HYPERTENSION
     Dosage: 20 MCG/ML INHALE 20 MCG THROUGH MOUTH EVERY NEBU 2 HOURS (WHILE AWAKE)
     Route: 055
  7. PACERONE [Concomitant]
     Active Substance: AMIODARONE HYDROCHLORIDE
     Indication: SINUS RHYTHM
     Dosage: 200 MG TABLET; TAKE 1 TABLET BY MOUTH DAILY
     Route: 048
  8. XANAX [Concomitant]
     Active Substance: ALPRAZOLAM
     Dosage: 0.5 MG THREE TIMES DAILY AS NEEDED
     Route: 048
  9. BENTYL [Concomitant]
     Active Substance: DICYCLOMINE HYDROCHLORIDE
     Dosage: 20 MG, TWICE DAILY WITH MEALS
     Route: 048
  10. ZOFRAN [Concomitant]
     Active Substance: ONDANSETRON HYDROCHLORIDE
     Dosage: 8 MG, EVERY 8 HOURS AS NEEDED
     Route: 048
  11. VITAMIN D3 [Concomitant]
     Active Substance: CHOLECALCIFEROL
     Dosage: 2,000 IU CAPSULE; TAKE 1 CAPSULE DAILY
     Route: 048
  12. TRACLEER [Suspect]
     Active Substance: BOSENTAN
     Indication: PULMONARY HYPERTENSION
     Dosage: 125 MG, 2X/DAY
     Route: 048
  13. ARANESP [Concomitant]
     Active Substance: DARBEPOETIN ALFA
     Indication: RENAL FAILURE
  14. ROCALTROL [Concomitant]
     Active Substance: CALCITRIOL
     Dosage: 0.25 MCG, THREE TIMES A WEEK
     Route: 048
  15. CYANOCOBALAMIN-VITAMIN B-12 [Concomitant]
     Dosage: 2,000 MCG, ONCE A WEEK
     Route: 030
  16. NITROSTAT [Concomitant]
     Active Substance: NITROGLYCERIN
     Dosage: 0.4 MG, UNDER TONGUE EVERY 5 MINUTE AS NEEDED
     Route: 060
  17. DEMADEX [Concomitant]
     Active Substance: TORSEMIDE
     Dosage: 10 MG, 2X/DAY
     Route: 048
  18. LUTEIN [Concomitant]
     Active Substance: LUTEIN
     Dosage: 20 MG, UNK
     Route: 048
  19. VENTAVIS [Suspect]
     Active Substance: ILOPROST
     Indication: PULMONARY ARTERIAL HYPERTENSION
     Dosage: 5 MCG, 4-8X/DAY
  20. GLUCOTROL [Concomitant]
     Active Substance: GLIPIZIDE
     Dosage: 2.5 MG, 3 TIMES DAILY (WITH MEALS)
     Route: 048
  21. REVATIO [Suspect]
     Active Substance: SILDENAFIL CITRATE
     Indication: PULMONARY HYPERTENSION
     Dosage: 40 MG, 3 TIMES DAILY
     Route: 048
     Dates: start: 20070109
  22. ARANESP [Concomitant]
     Active Substance: DARBEPOETIN ALFA
     Indication: ANAEMIA
     Dosage: 1 ML INTO FATTY TISSUE UNDER SKIN, EVERY 7 DAYS
     Route: 058
  23. VITRON-C ORAL [Concomitant]
     Dosage: UNK
     Route: 048

REACTIONS (22)
  - Pulmonary hypertension [Unknown]
  - Acute kidney injury [Unknown]
  - Chronic kidney disease [Unknown]
  - Heparin-induced thrombocytopenia [Unknown]
  - Fluid overload [Recovering/Resolving]
  - Condition aggravated [Recovering/Resolving]
  - Generalised oedema [Unknown]
  - Cardiac failure congestive [Recovering/Resolving]
  - Presyncope [Unknown]
  - Escherichia urinary tract infection [Unknown]
  - Atrial fibrillation [Unknown]
  - Acute kidney injury [Unknown]
  - Urine output decreased [Unknown]
  - Pleural effusion [Unknown]
  - Hypertensive heart disease [Unknown]
  - Fatigue [Unknown]
  - Haematuria [Recovered/Resolved]
  - Nephrogenic anaemia [Unknown]
  - Dyspnoea [Unknown]
  - Cardiac failure chronic [Unknown]
  - Chest pain [Unknown]
  - Oedema [Unknown]

NARRATIVE: CASE EVENT DATE: 201410
